FAERS Safety Report 23508209 (Version 3)
Quarter: 2025Q3

REPORT INFORMATION
  Report Type: Report from Study
  Country: US (occurrence: US)
  Receive Date: 20240209
  Receipt Date: 20250703
  Transmission Date: 20251020
  Serious: Yes (Other)
  Sender: ABBVIE
  Company Number: US-ABBVIE-5625618

PATIENT
  Sex: Male

DRUGS (2)
  1. SKYRIZI [Suspect]
     Active Substance: RISANKIZUMAB-RZAA
     Indication: Psoriasis
     Route: 058
     Dates: start: 20220730
  2. SKYRIZI [Suspect]
     Active Substance: RISANKIZUMAB-RZAA
     Route: 058
     Dates: start: 20200828

REACTIONS (7)
  - Surgery [Recovered/Resolved]
  - Tendon injury [Recovered/Resolved]
  - Road traffic accident [Recovering/Resolving]
  - Joint swelling [Unknown]
  - Arthritis [Unknown]
  - Scar [Unknown]
  - Psoriasis [Unknown]

NARRATIVE: CASE EVENT DATE: 20220604
